FAERS Safety Report 25281365 (Version 1)
Quarter: 2025Q2

REPORT INFORMATION
  Report Type: Spontaneous
  Country: US (occurrence: US)
  Receive Date: 20250508
  Receipt Date: 20250508
  Transmission Date: 20250717
  Serious: No
  Sender: DR REDDYS
  Company Number: None

PATIENT
  Age: 52 Year
  Sex: Male
  Weight: 117.6 kg

DRUGS (13)
  1. OLANZAPINE [Suspect]
     Active Substance: OLANZAPINE
     Indication: Product used for unknown indication
     Route: 048
  2. RISPERIDONE [Suspect]
     Active Substance: RISPERIDONE
     Indication: Generalised anxiety disorder
  3. RISPERIDONE [Suspect]
     Active Substance: RISPERIDONE
     Indication: Intermittent explosive disorder
  4. ARIPIPRAZOLE [Concomitant]
     Active Substance: ARIPIPRAZOLE
     Indication: Generalised anxiety disorder
  5. ARIPIPRAZOLE [Concomitant]
     Active Substance: ARIPIPRAZOLE
     Indication: Intermittent explosive disorder
  6. ARIPIPRAZOLE [Concomitant]
     Active Substance: ARIPIPRAZOLE
     Indication: Eating disorder
  7. METFORMIN [Concomitant]
     Active Substance: METFORMIN HYDROCHLORIDE
     Indication: Type 2 diabetes mellitus
  8. SITAGLIPTIN [Concomitant]
     Active Substance: SITAGLIPTIN
     Indication: Type 2 diabetes mellitus
  9. HYDROCHLOROTHIAZIDE [Concomitant]
     Active Substance: HYDROCHLOROTHIAZIDE
     Indication: Generalised anxiety disorder
  10. HYDROCHLOROTHIAZIDE [Concomitant]
     Active Substance: HYDROCHLOROTHIAZIDE
     Indication: Intermittent explosive disorder
  11. LISINOPRIL [Concomitant]
     Active Substance: LISINOPRIL
     Indication: Generalised anxiety disorder
  12. LISINOPRIL [Concomitant]
     Active Substance: LISINOPRIL
     Indication: Intermittent explosive disorder
  13. ROSUVASTATIN [Concomitant]
     Active Substance: ROSUVASTATIN
     Indication: Hyperlipidaemia

REACTIONS (2)
  - Weight increased [Unknown]
  - Drug ineffective for unapproved indication [Unknown]
